FAERS Safety Report 8187544-4 (Version None)
Quarter: 2012Q1

REPORT INFORMATION
  Report Type: 
  Country: None (occurrence: None)
  Receive Date: 20120306
  Receipt Date: 20120221
  Transmission Date: 20120608
  Serious: Yes (Hospitalization)
  Sender: FDA-Public Use
  Company Number: NL-MEDIMMUNE-MEDI-0015054

PATIENT
  Sex: Male
  Weight: 7.1 kg

DRUGS (7)
  1. HYDROCORTISONE [Concomitant]
  2. SYNAGIS [Suspect]
     Indication: BRONCHOPULMONARY DYSPLASIA
     Route: 030
     Dates: start: 20111028, end: 20120119
  3. ESOMEPRAZOLE [Concomitant]
  4. LEVOTHYROXINE SODIUM [Concomitant]
  5. SYNAGIS [Suspect]
     Route: 030
     Dates: start: 20120221, end: 20120221
  6. TRIMETHOPRIM SULFOMETHOXAZOL [Concomitant]
  7. DOMPERIDONE [Concomitant]

REACTIONS (4)
  - PYREXIA [None]
  - RESPIRATORY FAILURE [None]
  - POLYOMAVIRUS TEST POSITIVE [None]
  - COUGH [None]
